FAERS Safety Report 24399848 (Version 1)
Quarter: 2024Q4

REPORT INFORMATION
  Report Type: Spontaneous
  Country: US (occurrence: US)
  Receive Date: 20241005
  Receipt Date: 20241005
  Transmission Date: 20250115
  Serious: No
  Sender: SANOFI AVENTIS
  Company Number: US-SA-2024SA283489

PATIENT

DRUGS (5)
  1. LANTUS [Suspect]
     Active Substance: INSULIN GLARGINE
     Dosage: 40 IU
  2. LANTUS [Suspect]
     Active Substance: INSULIN GLARGINE
     Dosage: 28 IU
  3. INSULIN ASPART [Suspect]
     Active Substance: INSULIN ASPART
     Dosage: 15 U
  4. INSULIN ASPART [Suspect]
     Active Substance: INSULIN ASPART
     Dosage: 10 U
  5. OZEMPIC [Suspect]
     Active Substance: SEMAGLUTIDE
     Dosage: UNK

REACTIONS (2)
  - Nausea [Unknown]
  - Intentional product use issue [Unknown]
